FAERS Safety Report 7354842-3 (Version None)
Quarter: 2011Q1

REPORT INFORMATION
  Report Type: 
  Country: None (occurrence: None)
  Receive Date: 20110311
  Receipt Date: 20110311
  Transmission Date: 20110831
  Serious: No
  Sender: FDA-Public Use
  Company Number: None

PATIENT
  Sex: Female
  Weight: 64.8644 kg

DRUGS (1)
  1. NITROFURANTOIN [Suspect]
     Indication: URINARY TRACT INFECTION
     Dosage: 1 CAPSULE EVERY 12 HOURS
     Dates: start: 20110101, end: 20110105

REACTIONS (17)
  - SINUS CONGESTION [None]
  - HEADACHE [None]
  - NAUSEA [None]
  - DIZZINESS [None]
  - BUTTERFLY RASH [None]
  - SINUS DISORDER [None]
  - DYSPEPSIA [None]
  - DIARRHOEA [None]
  - HYPERHIDROSIS [None]
  - CONFUSIONAL STATE [None]
  - PAIN [None]
  - CHEST DISCOMFORT [None]
  - FLATULENCE [None]
  - PRODUCTIVE COUGH [None]
  - MEMORY IMPAIRMENT [None]
  - LUNG DISORDER [None]
  - FEELING ABNORMAL [None]
